FAERS Safety Report 23035004 (Version 3)
Quarter: 2023Q4

REPORT INFORMATION
  Report Type: Spontaneous
  Country: JP (occurrence: JP)
  Receive Date: 20231005
  Receipt Date: 20231229
  Transmission Date: 20240109
  Serious: Yes (Death, Hospitalization, Other)
  Sender: FDA-Public Use
  Company Number: JP-ABBVIE-5433883

PATIENT
  Age: 40 Year
  Sex: Female
  Weight: 43 kg

DRUGS (3)
  1. NORVIR [Suspect]
     Active Substance: RITONAVIR
     Indication: HIV infection
     Dosage: FORM STRENGTH: 100MG
     Route: 048
  2. LAMIVUDINE [Concomitant]
     Active Substance: LAMIVUDINE
     Indication: HIV infection
     Route: 065
  3. STAVUDINE [Concomitant]
     Active Substance: STAVUDINE
     Indication: HIV infection
     Route: 065

REACTIONS (2)
  - Moyamoya disease [Fatal]
  - Cerebral haemorrhage [Fatal]

NARRATIVE: CASE EVENT DATE: 20070601
